FAERS Safety Report 20113030 (Version 1)
Quarter: 2021Q4

REPORT INFORMATION
  Report Type: Other
  Country: None (occurrence: US)
  Receive Date: 20211125
  Receipt Date: 20211125
  Transmission Date: 20220303
  Serious: Yes (Hospitalization, Other)
  Sender: FDA-Public Use
  Company Number: US-Renata Limited-2122323

PATIENT
  Age: 66 Year
  Sex: Female

DRUGS (3)
  1. METOPROLOL TARTRATE [Suspect]
     Active Substance: METOPROLOL TARTRATE
     Indication: Atrial fibrillation
     Route: 048
  2. VERAPAMIL [Interacting]
     Active Substance: VERAPAMIL HYDROCHLORIDE
     Route: 048
  3. HERBALS [Interacting]
     Active Substance: HERBALS
     Route: 065

REACTIONS (10)
  - Dyspnoea [Recovering/Resolving]
  - Chest pain [Recovering/Resolving]
  - Asthenia [Recovering/Resolving]
  - Bradycardia [Recovering/Resolving]
  - Hypotension [Recovering/Resolving]
  - Blood glucose increased [Recovered/Resolved]
  - Blood potassium increased [Recovered/Resolved]
  - Syncope [Recovering/Resolving]
  - Drug interaction [Recovering/Resolving]
  - Food interaction [Recovering/Resolving]
